FAERS Safety Report 8577550-X (Version None)
Quarter: 2012Q3

REPORT INFORMATION
  Report Type: 
  Country: None (occurrence: None)
  Receive Date: 20120807
  Receipt Date: 20120801
  Transmission Date: 20120928
  Serious: Yes (Death, Other)
  Sender: FDA-Public Use
  Company Number: US-ROXANE LABORATORIES, INC.-2012-RO-01627RO

PATIENT
  Age: 27 Year
  Sex: Female

DRUGS (6)
  1. CELLCEPT [Suspect]
     Indication: LIVER TRANSPLANT
     Dosage: 2000 MG
  2. AZATHIOPRINE SODIUM [Suspect]
     Indication: LIVER TRANSPLANT
  3. SIROLIMUS [Suspect]
     Indication: CHOLESTASIS
  4. PREDNISONE [Suspect]
     Indication: LIVER TRANSPLANT
     Dosage: 20 MG
  5. TACROLIMUS [Suspect]
     Indication: LIVER TRANSPLANT
  6. SIROLIMUS [Suspect]
     Indication: LIVER TRANSPLANT REJECTION

REACTIONS (8)
  - TRANSPLANT REJECTION [None]
  - LIVER TRANSPLANT REJECTION [None]
  - DEATH [None]
  - DRUG RESISTANCE [None]
  - CHRONIC HEPATITIS [None]
  - HEMIPARESIS [None]
  - PREMATURE BABY [None]
  - CEREBRAL ASPERGILLOSIS [None]
